FAERS Safety Report 4279682-3 (Version None)
Quarter: 2004Q1

REPORT INFORMATION
  Report Type: 
  Country: None (occurrence: None)
  Receive Date: 20040122
  Receipt Date: 20040115
  Transmission Date: 20041129
  Serious: Yes (Hospitalization)
  Sender: FDA-Public Use
  Company Number: 2004194386JP

PATIENT
  Age: 70 Year
  Sex: Female

DRUGS (2)
  1. CAMPTOSAR [Suspect]
     Indication: COLORECTAL CANCER METASTATIC
     Dosage: 60 MG/M2, CYCLIC, IV
     Route: 042
     Dates: start: 20030926, end: 20031114
  2. DOXYFLURIDINE (DOXIFLURIDINE) [Concomitant]

REACTIONS (4)
  - COLORECTAL CANCER METASTATIC [None]
  - DEHYDRATION [None]
  - MALAISE [None]
  - MALIGNANT NEOPLASM PROGRESSION [None]
